FAERS Safety Report 6477415-3 (Version None)
Quarter: 2009Q4

REPORT INFORMATION
  Report Type: 
  Country: None (occurrence: None)
  Receive Date: 20091207
  Receipt Date: 20091125
  Transmission Date: 20100525
  Serious: Yes (Death, Other)
  Sender: FDA-Public Use
  Company Number: JP-SANOFI-AVENTIS-200912982JP

PATIENT
  Age: 28 Year
  Sex: Female

DRUGS (2)
  1. DOCETAXEL [Suspect]
     Indication: GASTRIC CANCER RECURRENT
     Route: 041
     Dates: start: 20080401
  2. TS-1 [Suspect]
     Indication: GASTRIC CANCER RECURRENT

REACTIONS (1)
  - DERMATOMYOSITIS [None]
